FAERS Safety Report 4453611-1 (Version None)
Quarter: 2004Q3

REPORT INFORMATION
  Report Type: 
  Country: None (occurrence: None)
  Receive Date: 20040920
  Receipt Date: 20040908
  Transmission Date: 20050211
  Serious: Yes (Hospitalization)
  Sender: FDA-Public Use
  Company Number: DE-BRISTOL-MYERS SQUIBB COMPANY-12700993

PATIENT
  Age: 64 Year
  Sex: Female
  Weight: 67 kg

DRUGS (3)
  1. ENDOXAN [Suspect]
     Indication: BREAST CANCER
     Dosage: GIVEN ON 20-JUL AND 02-AUG-2004, DAYS 1-14
     Route: 048
     Dates: start: 20040802, end: 20040802
  2. EPIRUBICIN [Suspect]
     Indication: BREAST CANCER
     Dosage: GIVEN ON 20JUL AND 27JUL
     Route: 042
     Dates: start: 20040727, end: 20040727
  3. FLUOROURACIL [Suspect]
     Indication: BREAST CANCER
     Dosage: GIVEN ON 20JUL AND 27JUL
     Route: 042
     Dates: start: 20040727, end: 20040727

REACTIONS (5)
  - BRONCHITIS [None]
  - NAUSEA [None]
  - STOMATITIS [None]
  - VERTIGO [None]
  - VOMITING [None]
